FAERS Safety Report 15401895 (Version 2)
Quarter: 2018Q4

REPORT INFORMATION
  Report Type: Spontaneous
  Country: SG (occurrence: SG)
  Receive Date: 20180919
  Receipt Date: 20181018
  Transmission Date: 20190204
  Serious: Yes (Other)
  Sender: FDA-Public Use
  Company Number: SG-BAYER-2018-175525

PATIENT
  Sex: Male

DRUGS (1)
  1. XOFIGO [Suspect]
     Active Substance: RADIUM RA-223 DICHLORIDE

REACTIONS (6)
  - Malaise [None]
  - Fatigue [None]
  - Bone pain [None]
  - Transfusion [None]
  - Prostatic specific antigen increased [None]
  - Disease progression [Unknown]
